FAERS Safety Report 5927347-1 (Version None)
Quarter: 2008Q4

REPORT INFORMATION
  Report Type: 
  Country: None (occurrence: None)
  Receive Date: 20081021
  Receipt Date: 20081010
  Transmission Date: 20090506
  Serious: Yes (Other)
  Sender: FDA-Public Use
  Company Number: CHPA2008US17422

PATIENT
  Age: 76 Year
  Sex: Female

DRUGS (2)
  1. VOLTAREN [Suspect]
     Indication: ARTHRALGIA
     Dosage: 2 G, BID, TOPICAL
     Route: 061
     Dates: start: 20081009, end: 20081009
  2. DIOVAN [Concomitant]

REACTIONS (6)
  - APPLICATION SITE PRURITUS [None]
  - DYSPNOEA [None]
  - PALPITATIONS [None]
  - SWELLING FACE [None]
  - THROAT TIGHTNESS [None]
  - URTICARIA [None]
